FAERS Safety Report 7067528-X (Version None)
Quarter: 2010Q4

REPORT INFORMATION
  Report Type: 
  Country: None (occurrence: None)
  Receive Date: 20101028
  Receipt Date: 20101019
  Transmission Date: 20110411
  Serious: Yes (Hospitalization)
  Sender: FDA-Public Use
  Company Number: DE-SANOFI-AVENTIS-2010SA063643

PATIENT
  Age: 63 Year
  Sex: Male
  Weight: 73.7 kg

DRUGS (9)
  1. ELOXATIN [Suspect]
     Indication: RECTAL CANCER
     Route: 041
     Dates: start: 20100826, end: 20100826
  2. ELOXATIN [Suspect]
     Route: 041
     Dates: start: 20100930, end: 20100930
  3. XELODA [Suspect]
     Indication: RECTAL CANCER
     Route: 048
     Dates: start: 20100826
  4. XELODA [Suspect]
     Route: 048
     Dates: start: 20100930, end: 20101004
  5. THERAPEUTIC RADIOPHARMACEUTICALS [Suspect]
     Indication: RECTAL CANCER
     Dosage: 15 GY TOTAL DOSE, 1.8 GY D1-33 W/O WEEKENDS + OPTIONAL BOOST
     Dates: start: 20100826, end: 20101004
  6. NOVALGIN [Concomitant]
     Route: 048
  7. LOPERAMIDE [Concomitant]
     Route: 048
  8. MESALAZINE [Concomitant]
     Route: 048
  9. PANTOPRAZOLE SODIUM [Concomitant]
     Indication: GASTRITIS
     Route: 048

REACTIONS (4)
  - COLITIS ULCERATIVE [None]
  - DEHYDRATION [None]
  - DIARRHOEA [None]
  - TUMOUR NECROSIS [None]
